FAERS Safety Report 9170497 (Version 2)
Quarter: 2013Q2

REPORT INFORMATION
  Report Type: Spontaneous
  Country: US (occurrence: US)
  Receive Date: 20130319
  Receipt Date: 20130503
  Transmission Date: 20140414
  Serious: Yes (Other)
  Sender: FDA-Public Use
  Company Number: US-JNJFOC-20130305889

PATIENT
  Age: 22 Year
  Sex: Male

DRUGS (2)
  1. INVEGA SUSTENNA [Suspect]
     Indication: PRODUCT USED FOR UNKNOWN INDICATION
     Route: 030
     Dates: start: 2012
  2. VIIBRYD [Concomitant]
     Indication: DEPRESSION
     Route: 048

REACTIONS (3)
  - Hallucination, auditory [Unknown]
  - Blood prolactin increased [Unknown]
  - Blood cholesterol increased [Unknown]
